FAERS Safety Report 8241803-5 (Version None)
Quarter: 2012Q1

REPORT INFORMATION
  Report Type: 
  Country: None (occurrence: None)
  Receive Date: 20120328
  Receipt Date: 20110531
  Transmission Date: 20120608
  Serious: Yes (Hospitalization)
  Sender: FDA-Public Use
  Company Number: TW-WATSON-2011-08063

PATIENT
  Age: 14 Month
  Sex: Female

DRUGS (1)
  1. CEFUROXIME [Suspect]
     Indication: OTITIS MEDIA ACUTE
     Dosage: 125 MG, 8 DOSES OVER 4 DAYS
     Route: 048

REACTIONS (2)
  - RECTAL PROLAPSE [None]
  - PSEUDOMEMBRANOUS COLITIS [None]
